FAERS Safety Report 5337199-9 (Version None)
Quarter: 2007Q2

REPORT INFORMATION
  Report Type: 
  Country: None (occurrence: None)
  Receive Date: 20070529
  Receipt Date: 20070524
  Transmission Date: 20071010
  Serious: Yes (Other)
  Sender: FDA-Public Use
  Company Number: A0643696A

PATIENT
  Age: 80 Year
  Sex: Female

DRUGS (2)
  1. ADVAIR DISKUS 100/50 [Suspect]
     Indication: ASTHMA
     Dosage: 1PUFF TWICE PER DAY
     Route: 055
     Dates: start: 20020101
  2. CONCURRENT MEDICATIONS [Concomitant]

REACTIONS (5)
  - CATARACT [None]
  - EYE HAEMORRHAGE [None]
  - MACULAR DEGENERATION [None]
  - MACULOPATHY [None]
  - VISUAL ACUITY REDUCED [None]
